FAERS Safety Report 19721881 (Version 1)
Quarter: 2021Q3

REPORT INFORMATION
  Report Type: Report from Study
  Country: FR (occurrence: FR)
  Receive Date: 20210819
  Receipt Date: 20210819
  Transmission Date: 20211014
  Serious: Yes (Hospitalization, Other)
  Sender: FDA-Public Use
  Company Number: FR-TAKEDA-FR201908441

PATIENT
  Sex: Female
  Weight: 44 kg

DRUGS (51)
  1. TEDUGLUTIDE [Suspect]
     Active Substance: TEDUGLUTIDE
     Indication: SHORT-BOWEL SYNDROME
     Dosage: UNK
     Route: 065
     Dates: start: 20160316
  2. TEDUGLUTIDE [Suspect]
     Active Substance: TEDUGLUTIDE
     Indication: SHORT-BOWEL SYNDROME
     Dosage: UNK
     Route: 065
     Dates: start: 20160316
  3. TEDUGLUTIDE [Suspect]
     Active Substance: TEDUGLUTIDE
     Dosage: 2.6 MILLIGRAM (0.05 MG KG AND 7 DOSES PER WEEK)
     Route: 065
     Dates: start: 20160516, end: 20160516
  4. TEDUGLUTIDE [Suspect]
     Active Substance: TEDUGLUTIDE
     Dosage: 19.5 MILLIGRAM (0.05 MG KG AND 7 DOSES PER WEEK)
     Route: 065
     Dates: start: 20170512, end: 20170619
  5. TEDUGLUTIDE [Suspect]
     Active Substance: TEDUGLUTIDE
     Dosage: 2 MILLIGRAM (0.05 MG KG AND 7 DOSES PER WEEK)
     Route: 065
     Dates: start: 20170627, end: 20170822
  6. TEDUGLUTIDE [Suspect]
     Active Substance: TEDUGLUTIDE
     Dosage: 1 MILLIGRAM (0.05 MG KG AND 7 DOSES PER WEEK)
     Route: 065
     Dates: start: 20171014, end: 201711
  7. TEDUGLUTIDE [Suspect]
     Active Substance: TEDUGLUTIDE
     Dosage: 2.4 MILLIGRAM (0.05 MG KG AND 7 DOSES PER WEEK)
     Route: 065
     Dates: start: 20160517, end: 20160616
  8. TEDUGLUTIDE [Suspect]
     Active Substance: TEDUGLUTIDE
     Dosage: 2.6 MILLIGRAM (0.05 MG KG AND 7 DOSES PER WEEK)
     Route: 065
     Dates: start: 20160617, end: 20160816
  9. TEDUGLUTIDE [Suspect]
     Active Substance: TEDUGLUTIDE
     Dosage: 2.6 MILLIGRAM (0.05 MG KG AND 7 DOSES PER WEEK)
     Route: 065
     Dates: start: 20160617, end: 20160816
  10. TEDUGLUTIDE [Suspect]
     Active Substance: TEDUGLUTIDE
     Dosage: 2.4 MILLIGRAM (0.05 MG KG AND 7 DOSES PER WEEK)
     Route: 065
     Dates: start: 20160817, end: 20160906
  11. TEDUGLUTIDE [Suspect]
     Active Substance: TEDUGLUTIDE
     Dosage: 2.2 MILLIGRAM (0.05 MG KG AND 7 DOSES PER WEEK)
     Route: 065
     Dates: start: 20160907, end: 20161109
  12. TEDUGLUTIDE [Suspect]
     Active Substance: TEDUGLUTIDE
     Dosage: 2.27 MILLIGRAM (0.05 MG KG AND 7 DOSES PER WEEK)
     Route: 065
     Dates: start: 20170321, end: 20170512
  13. TEDUGLUTIDE [Suspect]
     Active Substance: TEDUGLUTIDE
     Dosage: 2.27 MILLIGRAM (0.05 MG KG AND 7 DOSES PER WEEK)
     Route: 065
     Dates: start: 20170321, end: 20170512
  14. TEDUGLUTIDE [Suspect]
     Active Substance: TEDUGLUTIDE
     Dosage: 19.5 MILLIGRAM (0.05 MG KG AND 7 DOSES PER WEEK)
     Route: 065
     Dates: start: 20170512, end: 20170619
  15. TEDUGLUTIDE [Suspect]
     Active Substance: TEDUGLUTIDE
     Dosage: 2.6 MILLIGRAM (0.05 MG KG AND 7 DOSES PER WEEK)
     Route: 065
     Dates: start: 20160516, end: 20160516
  16. TEDUGLUTIDE [Suspect]
     Active Substance: TEDUGLUTIDE
     Dosage: 2.4 MILLIGRAM (0.05 MG KG AND 7 DOSES PER WEEK)
     Route: 065
     Dates: start: 20160517, end: 20160616
  17. TEDUGLUTIDE [Suspect]
     Active Substance: TEDUGLUTIDE
     Dosage: 2.6 MILLIGRAM (0.05 MG KG AND 7 DOSES PER WEEK)
     Route: 065
     Dates: start: 20160617, end: 20160816
  18. TEDUGLUTIDE [Suspect]
     Active Substance: TEDUGLUTIDE
     Dosage: 2.2 MILLIGRAM (0.05 MG KG AND 7 DOSES PER WEEK)
     Route: 065
     Dates: start: 20160907, end: 20161109
  19. TEDUGLUTIDE [Suspect]
     Active Substance: TEDUGLUTIDE
     Dosage: 2.3 MILLIGRAM (0.05 MG KG AND 7 DOSES PER WEEK)
     Route: 065
     Dates: start: 20161110, end: 20170321
  20. TEDUGLUTIDE [Suspect]
     Active Substance: TEDUGLUTIDE
     Dosage: 2 MILLIGRAM (0.05 MG KG AND 7 DOSES PER WEEK)
     Route: 065
     Dates: start: 20170627, end: 20170822
  21. TEDUGLUTIDE [Suspect]
     Active Substance: TEDUGLUTIDE
     Indication: SHORT-BOWEL SYNDROME
     Dosage: UNK
     Route: 065
     Dates: start: 20160316
  22. TEDUGLUTIDE [Suspect]
     Active Substance: TEDUGLUTIDE
     Dosage: 2.3 MILLIGRAM (0.05 MG KG AND 7 DOSES PER WEEK)
     Route: 065
     Dates: start: 20161110, end: 20170321
  23. TEDUGLUTIDE [Suspect]
     Active Substance: TEDUGLUTIDE
     Dosage: 2 MILLIGRAM (0.05 MG KG AND 7 DOSES PER WEEK)
     Route: 065
     Dates: start: 20170918, end: 20171013
  24. TEDUGLUTIDE [Suspect]
     Active Substance: TEDUGLUTIDE
     Dosage: 2 MILLIGRAM (0.05 MG KG AND 7 DOSES PER WEEK)
     Route: 065
     Dates: start: 20170918, end: 20171013
  25. TEDUGLUTIDE [Suspect]
     Active Substance: TEDUGLUTIDE
     Indication: SHORT-BOWEL SYNDROME
     Dosage: UNK
     Route: 065
     Dates: start: 20160316
  26. TEDUGLUTIDE [Suspect]
     Active Substance: TEDUGLUTIDE
     Dosage: 2.6 MILLIGRAM (0.05 MG KG AND 7 DOSES PER WEEK)
     Route: 065
     Dates: start: 20160617, end: 20160816
  27. TEDUGLUTIDE [Suspect]
     Active Substance: TEDUGLUTIDE
     Dosage: 2.2 MILLIGRAM (0.05 MG KG AND 7 DOSES PER WEEK)
     Route: 065
     Dates: start: 20160907, end: 20161109
  28. TEDUGLUTIDE [Suspect]
     Active Substance: TEDUGLUTIDE
     Dosage: 2 MILLIGRAM (0.05 MG KG AND 7 DOSES PER WEEK)
     Route: 065
     Dates: start: 20170627, end: 20170822
  29. TEDUGLUTIDE [Suspect]
     Active Substance: TEDUGLUTIDE
     Dosage: 1 MILLIGRAM (0.05 MG KG AND 7 DOSES PER WEEK)
     Route: 065
     Dates: start: 20171014, end: 201711
  30. TEDUGLUTIDE [Suspect]
     Active Substance: TEDUGLUTIDE
     Dosage: 2.6 MILLIGRAM (0.05 MG KG AND 7 DOSES PER WEEK)
     Route: 065
     Dates: start: 20160516, end: 20160516
  31. TEDUGLUTIDE [Suspect]
     Active Substance: TEDUGLUTIDE
     Dosage: 2.6 MILLIGRAM (0.05 MG KG AND 7 DOSES PER WEEK)
     Route: 065
     Dates: start: 20160516, end: 20160516
  32. TEDUGLUTIDE [Suspect]
     Active Substance: TEDUGLUTIDE
     Dosage: 2.4 MILLIGRAM (0.05 MG KG AND 7 DOSES PER WEEK)
     Route: 065
     Dates: start: 20160517, end: 20160616
  33. TEDUGLUTIDE [Suspect]
     Active Substance: TEDUGLUTIDE
     Dosage: 2.3 MILLIGRAM (0.05 MG KG AND 7 DOSES PER WEEK)
     Route: 065
     Dates: start: 20161110, end: 20170321
  34. TEDUGLUTIDE [Suspect]
     Active Substance: TEDUGLUTIDE
     Dosage: 2 MILLIGRAM (0.05 MG KG AND 7 DOSES PER WEEK)
     Route: 065
     Dates: start: 20170627, end: 20170822
  35. TEDUGLUTIDE [Suspect]
     Active Substance: TEDUGLUTIDE
     Dosage: 2 MILLIGRAM (0.05 MG KG AND 7 DOSES PER WEEK)
     Route: 065
     Dates: start: 20170918, end: 20171013
  36. TEDUGLUTIDE [Suspect]
     Active Substance: TEDUGLUTIDE
     Dosage: 1 MILLIGRAM (0.05 MG KG AND 7 DOSES PER WEEK)
     Route: 065
     Dates: start: 20171014, end: 201711
  37. TEDUGLUTIDE [Suspect]
     Active Substance: TEDUGLUTIDE
     Dosage: 2.4 MILLIGRAM (0.05 MG KG AND 7 DOSES PER WEEK)
     Route: 065
     Dates: start: 20160517, end: 20160616
  38. TEDUGLUTIDE [Suspect]
     Active Substance: TEDUGLUTIDE
     Dosage: 2.4 MILLIGRAM (0.05 MG KG AND 7 DOSES PER WEEK)
     Route: 065
     Dates: start: 20160817, end: 20160906
  39. TEDUGLUTIDE [Suspect]
     Active Substance: TEDUGLUTIDE
     Dosage: 2.4 MILLIGRAM (0.05 MG KG AND 7 DOSES PER WEEK)
     Route: 065
     Dates: start: 20160817, end: 20160906
  40. TEDUGLUTIDE [Suspect]
     Active Substance: TEDUGLUTIDE
     Dosage: 2.2 MILLIGRAM (0.05 MG KG AND 7 DOSES PER WEEK)
     Route: 065
     Dates: start: 20160907, end: 20161109
  41. TEDUGLUTIDE [Suspect]
     Active Substance: TEDUGLUTIDE
     Dosage: 2.3 MILLIGRAM (0.05 MG KG AND 7 DOSES PER WEEK)
     Route: 065
     Dates: start: 20161110, end: 20170321
  42. TEDUGLUTIDE [Suspect]
     Active Substance: TEDUGLUTIDE
     Dosage: 2.27 MILLIGRAM (0.05 MG KG AND 7 DOSES PER WEEK)
     Route: 065
     Dates: start: 20170321, end: 20170512
  43. TEDUGLUTIDE [Suspect]
     Active Substance: TEDUGLUTIDE
     Dosage: 19.5 MILLIGRAM (0.05 MG KG AND 7 DOSES PER WEEK)
     Route: 065
     Dates: start: 20170512, end: 20170619
  44. TEDUGLUTIDE [Suspect]
     Active Substance: TEDUGLUTIDE
     Dosage: 2 MILLIGRAM (0.05 MG KG AND 7 DOSES PER WEEK)
     Route: 065
     Dates: start: 20170918, end: 20171013
  45. TEDUGLUTIDE [Suspect]
     Active Substance: TEDUGLUTIDE
     Dosage: 1 MILLIGRAM (0.05 MG KG AND 7 DOSES PER WEEK)
     Route: 065
     Dates: start: 20171014, end: 201711
  46. CIFLOX [Concomitant]
     Active Substance: CIPROFLOXACIN
     Indication: URINARY TRACT INFECTION
  47. CIFLOX [Concomitant]
     Active Substance: CIPROFLOXACIN
     Indication: VASCULAR DEVICE INFECTION
  48. CEFTAZIDIME. [Concomitant]
     Active Substance: CEFTAZIDIME
     Indication: VASCULAR DEVICE INFECTION
  49. TEDUGLUTIDE [Suspect]
     Active Substance: TEDUGLUTIDE
     Dosage: 2.4 MILLIGRAM (0.05 MG KG AND 7 DOSES PER WEEK)
     Route: 065
     Dates: start: 20160817, end: 20160906
  50. TEDUGLUTIDE [Suspect]
     Active Substance: TEDUGLUTIDE
     Dosage: 2.27 MILLIGRAM (0.05 MG KG AND 7 DOSES PER WEEK)
     Route: 065
     Dates: start: 20170321, end: 20170512
  51. TEDUGLUTIDE [Suspect]
     Active Substance: TEDUGLUTIDE
     Dosage: 19.5 MILLIGRAM (0.05 MG KG AND 7 DOSES PER WEEK)
     Route: 065
     Dates: start: 20170512, end: 20170619

REACTIONS (2)
  - Device related sepsis [Recovered/Resolved]
  - Ovarian cyst [Not Recovered/Not Resolved]

NARRATIVE: CASE EVENT DATE: 20190307
